FAERS Safety Report 26144137 (Version 1)
Quarter: 2025Q4

REPORT INFORMATION
  Report Type: Spontaneous
  Country: PH (occurrence: PH)
  Receive Date: 20251211
  Receipt Date: 20251211
  Transmission Date: 20260118
  Serious: Yes (Other)
  Sender: RANBAXY
  Company Number: PH-SUN PHARMACEUTICAL INDUSTRIES INC-2025R1-540682

PATIENT
  Age: 58 Year
  Sex: Male

DRUGS (2)
  1. SPIRONOLACTONE [Suspect]
     Active Substance: SPIRONOLACTONE
     Indication: Hypokalaemia
     Dosage: 25 MILLIGRAM, OD
     Route: 065
  2. SPIRONOLACTONE [Suspect]
     Active Substance: SPIRONOLACTONE
     Dosage: 150 MILLIGRAM, BID
     Route: 065

REACTIONS (3)
  - Hyperaldosteronism [Unknown]
  - Acute kidney injury [Unknown]
  - Hypokalaemia [Unknown]
